FAERS Safety Report 12445058 (Version 1)
Quarter: 2016Q2

REPORT INFORMATION
  Report Type: Spontaneous
  Country: US (occurrence: US)
  Receive Date: 20160607
  Receipt Date: 20160607
  Transmission Date: 20160815
  Serious: No
  Sender: FDA-Public Use
  Company Number: US-ELI_LILLY_AND_COMPANY-US201605006280

PATIENT
  Sex: Male

DRUGS (3)
  1. OXYCODONE [Concomitant]
     Active Substance: OXYCODONE
     Dosage: UNK, UNKNOWN
  2. DULOXETINE HYDROCHLORIDE. [Suspect]
     Active Substance: DULOXETINE HYDROCHLORIDE
     Indication: IRRITABILITY
     Dosage: 60 MG, BID
     Route: 065
  3. MODAFINIL. [Concomitant]
     Active Substance: MODAFINIL
     Dosage: UNK, UNKNOWN

REACTIONS (6)
  - Dizziness [Recovered/Resolved]
  - Dry mouth [Recovered/Resolved]
  - Photophobia [Recovered/Resolved]
  - Constipation [Recovered/Resolved]
  - Off label use [Unknown]
  - Photosensitivity reaction [Recovered/Resolved]
